FAERS Safety Report 6957537-0 (Version None)
Quarter: 2010Q3

REPORT INFORMATION
  Report Type: 
  Country: None (occurrence: None)
  Receive Date: 20100831
  Receipt Date: 20100820
  Transmission Date: 20110219
  Serious: Yes (Other)
  Sender: FDA-Public Use
  Company Number: US-ELI_LILLY_AND_COMPANY-US201008007234

PATIENT
  Age: 73 Year
  Sex: Female

DRUGS (3)
  1. HUMALOG MIX 75/25 [Suspect]
     Indication: DIABETES MELLITUS
     Dosage: 65 U, EACH MORNING
  2. HUMALOG MIX 75/25 [Suspect]
     Dosage: 15 U, OTHER
  3. HUMALOG MIX 75/25 [Suspect]
     Dosage: 40 U, EACH EVENING

REACTIONS (1)
  - BLINDNESS [None]
